FAERS Safety Report 6318713-3 (Version None)
Quarter: 2009Q3

REPORT INFORMATION
  Report Type: 
  Country: None (occurrence: None)
  Receive Date: 20090819
  Receipt Date: 20090813
  Transmission Date: 20100115
  Serious: Yes (Other)
  Sender: FDA-Public Use
  Company Number: 2009SP020204

PATIENT
  Age: 37 Year
  Sex: Male
  Weight: 84 kg

DRUGS (4)
  1. MIRTAZAPINE [Suspect]
     Indication: DEPRESSION
     Dosage: 30 MG; QD; PO
     Route: 048
     Dates: start: 20051222
  2. INFLIXIMAB [Concomitant]
  3. METHOTREXATE SODIUM [Concomitant]
  4. PREDNISOLONE [Concomitant]

REACTIONS (3)
  - LIP SWELLING [None]
  - RASH [None]
  - URTICARIA [None]
